FAERS Safety Report 16789703 (Version 3)
Quarter: 2019Q4

REPORT INFORMATION
  Report Type: Spontaneous
  Country: US (occurrence: US)
  Receive Date: 20190910
  Receipt Date: 20191202
  Transmission Date: 20200122
  Serious: No
  Sender: FDA-Public Use
  Company Number: US-SA-2019SA250573

PATIENT
  Age: 32 Year
  Sex: Female
  Weight: 64.5 kg

DRUGS (13)
  1. DIPHENHYDRAMINE. [Concomitant]
     Active Substance: DIPHENHYDRAMINE
     Dosage: 25 MG, PRN
     Route: 048
     Dates: start: 20191031
  2. SODIUM CHLORIDE. [Concomitant]
     Active Substance: SODIUM CHLORIDE
     Dosage: 0.90 %
     Route: 042
     Dates: start: 20191031
  3. ACETAMINOPHEN. [Concomitant]
     Active Substance: ACETAMINOPHEN
     Dosage: 650 MG, PRN
     Route: 048
     Dates: start: 20191031
  4. EPINEPHRINE. [Concomitant]
     Active Substance: EPINEPHRINE
     Indication: ANAPHYLACTIC REACTION
     Dosage: 0.3 MG, PRN
     Route: 030
     Dates: start: 20191031
  5. IRON [Concomitant]
     Active Substance: IRON
     Dosage: 65 MG, QD
     Route: 048
     Dates: start: 20190927
  6. CEREZYME [Suspect]
     Active Substance: IMIGLUCERASE
     Dosage: 4000 IU, QOW
     Route: 042
     Dates: start: 20190805
  7. GLUCOSAMINE [Concomitant]
     Active Substance: GLUCOSAMINE
     Dosage: 1 CAP, QD
     Route: 048
     Dates: start: 20190927
  8. STERILE WATER [Concomitant]
     Active Substance: WATER
     Dosage: 100 ML
     Route: 042
     Dates: start: 20191031
  9. PRENATAL [ASCORBIC ACID;FERROUS FUMARATE;FOLIC ACID;RETINOL] [Concomitant]
     Dosage: 1 TAB, QD
     Route: 048
     Dates: start: 20190927
  10. FISH OIL [Concomitant]
     Active Substance: FISH OIL
     Dosage: UNK UNK, QD
     Route: 048
     Dates: start: 20190927
  11. CEREZYME [Suspect]
     Active Substance: IMIGLUCERASE
     Indication: GAUCHER^S DISEASE
     Dosage: UNK
     Route: 065
  12. NORMAL SALINE [Concomitant]
     Active Substance: SODIUM CHLORIDE
     Dosage: 0.90 %
     Route: 042
     Dates: start: 20191031
  13. CEREZYME [Suspect]
     Active Substance: IMIGLUCERASE
     Dosage: 3200 IU, QOW
     Route: 042
     Dates: start: 20160329

REACTIONS (3)
  - Exposure during pregnancy [Unknown]
  - Off label use [Unknown]
  - Infusion related reaction [Recovered/Resolved]

NARRATIVE: CASE EVENT DATE: 2013
